FAERS Safety Report 6082370-4 (Version None)
Quarter: 2009Q1

REPORT INFORMATION
  Report Type: 
  Country: None (occurrence: None)
  Receive Date: 20090218
  Receipt Date: 20090209
  Transmission Date: 20090719
  Serious: Yes (Hospitalization)
  Sender: FDA-Public Use
  Company Number: FR-ASTRAZENECA-2009CG00351

PATIENT
  Age: 29351 Day
  Sex: Female

DRUGS (11)
  1. TENORMIN [Suspect]
     Route: 048
     Dates: start: 20080815, end: 20080912
  2. KALEORID [Concomitant]
     Route: 048
  3. NOVONORM [Concomitant]
     Route: 048
  4. LANTUS [Concomitant]
  5. ALDACTONE [Concomitant]
     Route: 048
  6. FUROSEMIDE [Concomitant]
     Route: 048
  7. INIPOMP [Concomitant]
     Route: 048
  8. DAFLON [Concomitant]
  9. CHIBROXINE [Concomitant]
  10. CHIBRO-CADRON [Concomitant]
  11. MYDRIATICUM [Concomitant]

REACTIONS (2)
  - FALL [None]
  - HYPOTENSION [None]
